FAERS Safety Report 6152679-4 (Version None)
Quarter: 2009Q2

REPORT INFORMATION
  Report Type: 
  Country: None (occurrence: None)
  Receive Date: 20090413
  Receipt Date: 20090331
  Transmission Date: 20091009
  Serious: Yes (Hospitalization)
  Sender: FDA-Public Use
  Company Number: IL-ROCHE-625087

PATIENT
  Sex: Male
  Weight: 87.5 kg

DRUGS (13)
  1. MYCOPHENOLATE MOFETIL [Suspect]
     Indication: RENAL TRANSPLANT
     Dosage: FREQUENCY: 2
     Route: 048
     Dates: start: 20090301
  2. TACROLIMUS [Suspect]
     Indication: RENAL TRANSPLANT
     Dosage: FREQUENCY: 2
     Route: 048
     Dates: start: 20090301
  3. STEROID NOS [Suspect]
     Indication: RENAL TRANSPLANT
     Dosage: FREQUENCY: 1
     Route: 048
     Dates: start: 20090301, end: 20090322
  4. STEROID NOS [Suspect]
     Dosage: FREQUENCY: 2 DOSE INCREASED
     Route: 048
     Dates: start: 20090325
  5. LOSEC [Concomitant]
     Dates: start: 20090301, end: 20090326
  6. CARTIA XT [Concomitant]
     Dates: start: 20090301
  7. RESPRIM FORTE [Concomitant]
     Dates: start: 20090301
  8. VALCYTE [Concomitant]
     Dates: start: 20090301, end: 20090311
  9. CADEX [Concomitant]
     Dates: start: 20060101
  10. NORVASC [Concomitant]
     Dates: start: 20060101
  11. CALCITE [Concomitant]
     Dates: start: 20090307, end: 20090311
  12. CALCITE [Concomitant]
     Dates: start: 20090317
  13. ZANTAC [Concomitant]
     Dates: start: 20090327, end: 20090329

REACTIONS (1)
  - INTESTINAL OBSTRUCTION [None]
